FAERS Safety Report 7499594-1 (Version None)
Quarter: 2011Q2

REPORT INFORMATION
  Report Type: 
  Country: None (occurrence: None)
  Receive Date: 20110516
  Receipt Date: 20110504
  Transmission Date: 20111010
  Serious: Yes (Other)
  Sender: FDA-Public Use
  Company Number: 2011SP020567

PATIENT
  Age: 18 Year
  Sex: Female

DRUGS (3)
  1. DULERA TABLET [Suspect]
     Indication: ASTHMA
     Dosage: INH
     Route: 055
     Dates: start: 20110503, end: 20110504
  2. ALBUTEROL SULFATE AUTOHALER [Concomitant]
  3. SINGULAIR [Concomitant]

REACTIONS (4)
  - URTICARIA [None]
  - MIDDLE INSOMNIA [None]
  - SWELLING FACE [None]
  - DYSPNOEA [None]
